FAERS Safety Report 7524596-6 (Version None)
Quarter: 2011Q2

REPORT INFORMATION
  Report Type: 
  Country: None (occurrence: None)
  Receive Date: 20110606
  Receipt Date: 20110523
  Transmission Date: 20111010
  Serious: Yes (Hospitalization)
  Sender: FDA-Public Use
  Company Number: IE-ELI_LILLY_AND_COMPANY-IE201103008799

PATIENT
  Sex: Female

DRUGS (12)
  1. SERTRALINE HYDROCHLORIDE [Concomitant]
     Dosage: 50 MG, DAILY
  2. FLURAZEPAM [Concomitant]
     Dosage: 15 MG, NOCTE
  3. LIPITOR [Concomitant]
  4. BUTRANS [Concomitant]
     Dosage: 5 MG, WEEKLY (1/W)
  5. SIMVASTATIN [Concomitant]
     Dosage: 20 MG, NOCTE
  6. PANTOPRAZOLE [Concomitant]
     Dosage: 30 MG, QD
  7. SOLPADOL [Concomitant]
  8. SENNA-MINT WAF [Concomitant]
     Dosage: UNK, NOCTE
  9. PARALIEF [Concomitant]
  10. FORTEO [Suspect]
     Indication: OSTEOPOROSIS
     Dosage: 20 UG, DAILY
     Route: 058
     Dates: start: 20110311
  11. CALCICHEW [Concomitant]
  12. ASPIRIN [Concomitant]
     Dosage: 75 G, QD

REACTIONS (6)
  - MUSCULOSKELETAL PAIN [None]
  - DECREASED APPETITE [None]
  - DEHYDRATION [None]
  - NAUSEA [None]
  - HERPES ZOSTER [None]
  - SUPERINFECTION BACTERIAL [None]
